FAERS Safety Report 20866022 (Version 1)
Quarter: 2022Q2

REPORT INFORMATION
  Report Type: Spontaneous
  Country: FR (occurrence: FR)
  Receive Date: 20220524
  Receipt Date: 20220524
  Transmission Date: 20220721
  Serious: Yes (Other)
  Sender: FDA-Public Use
  Company Number: None

PATIENT
  Age: 35 Year
  Sex: Female
  Weight: 44 kg

DRUGS (1)
  1. BELATACEPT [Suspect]
     Active Substance: BELATACEPT
     Indication: Prophylaxis against transplant rejection
     Dosage: 250MG*1X/MOIS
     Route: 042
     Dates: start: 20191017

REACTIONS (1)
  - Epstein-Barr viraemia [Not Recovered/Not Resolved]

NARRATIVE: CASE EVENT DATE: 20200108
